FAERS Safety Report 12728607 (Version 1)
Quarter: 2016Q3

REPORT INFORMATION
  Report Type: Spontaneous
  Country: US (occurrence: US)
  Receive Date: 20160907
  Receipt Date: 20160907
  Transmission Date: 20161109
  Serious: No
  Sender: FDA-Public Use
  Company Number: None

PATIENT
  Age: 50 Year
  Sex: Female
  Weight: 49.95 kg

DRUGS (6)
  1. ZINC [Concomitant]
     Active Substance: ZINC\ZINC CHLORIDE
  2. TAMOXIFEFEN CITRATE 20MG TEVA [Suspect]
     Active Substance: TAMOXIFEN CITRATE
     Indication: INTRADUCTAL PROLIFERATIVE BREAST LESION
     Dosage: 90 TABLET DAILY ORAL
     Route: 048
     Dates: start: 20160509, end: 20160904
  3. CALCIUM [Concomitant]
     Active Substance: CALCIUM
  4. MAGNESIUM [Concomitant]
     Active Substance: MAGNESIUM
  5. VITAMIN D [Concomitant]
     Active Substance: CHOLECALCIFEROL
  6. MULTI VITAMIN [Concomitant]
     Active Substance: VITAMINS

REACTIONS (1)
  - Anxiety [None]

NARRATIVE: CASE EVENT DATE: 20160829
